FAERS Safety Report 5493572-X (Version None)
Quarter: 2007Q4

REPORT INFORMATION
  Report Type: 
  Country: None (occurrence: None)
  Receive Date: 20071023
  Receipt Date: 20070625
  Transmission Date: 20080405
  Serious: Yes (Hospitalization)
  Sender: FDA-Public Use
  Company Number: US-SANOFI-SYNTHELABO-A03200702046

PATIENT
  Age: 57 Year
  Sex: Male
  Weight: 90.7 kg

DRUGS (2)
  1. AMBIEN [Suspect]
     Indication: SLEEP DISORDER
     Route: 048
  2. OXYCONTIN [Concomitant]
     Route: 065

REACTIONS (5)
  - COGNITIVE DISORDER [None]
  - DELIRIUM [None]
  - FALL [None]
  - GAIT DISTURBANCE [None]
  - INCOHERENT [None]
